FAERS Safety Report 6259001-3 (Version None)
Quarter: 2009Q3

REPORT INFORMATION
  Report Type: 
  Country: None (occurrence: None)
  Receive Date: 20090707
  Receipt Date: 20090624
  Transmission Date: 20100115
  Serious: Yes (Other)
  Sender: FDA-Public Use
  Company Number: PHHY2009CL25518

PATIENT
  Age: 78 Year
  Sex: Female

DRUGS (2)
  1. TAREG [Suspect]
     Indication: HYPERTENSION
     Dosage: 1 DF (80 MG)/ DAY
     Route: 048
  2. LIPITOR [Concomitant]

REACTIONS (1)
  - PNEUMONITIS [None]
